FAERS Safety Report 10038311 (Version 1)
Quarter: 2014Q1

REPORT INFORMATION
  Report Type: Spontaneous
  Country: US (occurrence: US)
  Receive Date: 20140326
  Receipt Date: 20140326
  Transmission Date: 20141002
  Serious: Yes (Hospitalization)
  Sender: FDA-Public Use
  Company Number: US-BAXTER-2014BAX014629

PATIENT
  Age: 75 Year
  Sex: Male

DRUGS (2)
  1. DIANEAL LOW CALCIUM [Suspect]
     Indication: PERITONEAL DIALYSIS
     Route: 033
  2. DIANEAL LOW CALCIUM [Suspect]
     Indication: PERITONEAL DIALYSIS
     Route: 033

REACTIONS (7)
  - Convulsion [Recovering/Resolving]
  - Intestinal obstruction [Recovering/Resolving]
  - Surgical failure [Recovering/Resolving]
  - Ultrafiltration failure [Recovering/Resolving]
  - Aphagia [Recovering/Resolving]
  - Vomiting [Recovering/Resolving]
  - Hypotension [Recovering/Resolving]
